FAERS Safety Report 11968976 (Version 1)
Quarter: 2016Q1

REPORT INFORMATION
  Report Type: Spontaneous
  Country: US (occurrence: None)
  Receive Date: 20160127
  Receipt Date: 20160127
  Transmission Date: 20160526
  Serious: Yes (Life-Threatening, Hospitalization, Disabling, Other)
  Sender: FDA-Public Use
  Company Number: None

PATIENT
  Age: 45 Year
  Sex: Female
  Weight: 67.13 kg

DRUGS (14)
  1. TAPALLIX [Concomitant]
  2. HYDROXYZINE [Concomitant]
     Active Substance: HYDROXYZINE\HYDROXYZINE HYDROCHLORIDE
  3. PROTEIN POWDER FOR WOMEN [Concomitant]
  4. OXYDROLZINE [Concomitant]
  5. MULTI WITH MEGAS 3-6 [Concomitant]
  6. TRAZODONE [Concomitant]
     Active Substance: TRAZODONE HYDROCHLORIDE
  7. METACARBANOL [Concomitant]
  8. OFLOXACIN. [Suspect]
     Active Substance: OFLOXACIN
     Indication: DRUG THERAPY
     Dosage: 10 DROPS FOUR TIMES DAILY INTO THE EAR
  9. BACK BRACE [Concomitant]
  10. BRINELLIX [Concomitant]
  11. BIOTIN [Concomitant]
     Active Substance: BIOTIN
  12. PROBIOTICS [Concomitant]
     Active Substance: PROBIOTICS NOS
  13. NIACIN. [Concomitant]
     Active Substance: NIACIN
  14. CONGULATIVE ACID [Concomitant]

REACTIONS (9)
  - Hypoacusis [None]
  - Nerve injury [None]
  - Gastrointestinal disorder [None]
  - Blindness [None]
  - Seizure [None]
  - Nausea [None]
  - Impaired work ability [None]
  - Neoplasm [None]
  - Condition aggravated [None]
